FAERS Safety Report 8217199-1 (Version None)
Quarter: 2012Q1

REPORT INFORMATION
  Report Type: 
  Country: None (occurrence: None)
  Receive Date: 20120319
  Receipt Date: 20120307
  Transmission Date: 20120608
  Serious: Yes (Hospitalization, Other)
  Sender: FDA-Public Use
  Company Number: GB-BRISTOL-MYERS SQUIBB COMPANY-16443798

PATIENT
  Age: 70 Year
  Sex: Male

DRUGS (9)
  1. GLICLAZIDE [Suspect]
     Indication: TYPE 2 DIABETES MELLITUS
     Dosage: M/R TABS
  2. SPIRONOLACTONE [Concomitant]
     Dosage: 50MG TABS
     Dates: start: 20110830
  3. BLINDED: PLACEBO [Suspect]
     Indication: TYPE 2 DIABETES MELLITUS
     Dates: start: 20101213
  4. ASPIRIN [Suspect]
     Dosage: 1 DF : ={100MG
  5. BECLOMETHASONE DIPROPIONATE [Concomitant]
     Dosage: 1 DF: 100 UNITS NOS
     Dates: start: 20110920
  6. METFORMIN HCL [Suspect]
     Indication: TYPE 2 DIABETES MELLITUS
  7. NEBIVOLOL [Concomitant]
     Dates: start: 20110920
  8. BLINDED: SAXAGLIPTIN [Suspect]
     Indication: TYPE 2 DIABETES MELLITUS
     Dosage: 13DEC10-19SEP11,04OCT11-20FEB12
     Dates: start: 20101213, end: 20120220
  9. WARFARIN SODIUM [Suspect]
     Dates: start: 20110617

REACTIONS (3)
  - GASTRIC ULCER HAEMORRHAGE [None]
  - ANAEMIA [None]
  - RENAL IMPAIRMENT [None]
